FAERS Safety Report 8416649-5 (Version None)
Quarter: 2012Q2

REPORT INFORMATION
  Report Type: 
  Country: None (occurrence: None)
  Receive Date: 20120606
  Receipt Date: 20120529
  Transmission Date: 20120825
  Serious: Yes (Other)
  Sender: FDA-Public Use
  Company Number: JP-JNJFOC-20120516994

PATIENT
  Age: 91 Year
  Sex: Female

DRUGS (1)
  1. TRAMADOL HYDROCHLORIDE AND ACETAMINOPHEN [Suspect]
     Indication: PAIN
     Dosage: ONE PER ONE DAY AT BEDTIME
     Route: 048
     Dates: start: 20120516, end: 20120518

REACTIONS (1)
  - PYREXIA [None]
